FAERS Safety Report 7249965-3 (Version None)
Quarter: 2011Q1

REPORT INFORMATION
  Report Type: 
  Country: None (occurrence: None)
  Receive Date: 20110128
  Receipt Date: 20101112
  Transmission Date: 20110831
  Serious: No
  Sender: FDA-Public Use
  Company Number: A0892160A

PATIENT
  Sex: Male

DRUGS (1)
  1. WELLBUTRIN [Suspect]
     Dosage: 600MG UNKNOWN
     Route: 065
     Dates: start: 20020101

REACTIONS (1)
  - THERAPEUTIC RESPONSE UNEXPECTED [None]
